FAERS Safety Report 12323834 (Version 1)
Quarter: 2016Q2

REPORT INFORMATION
  Report Type: Spontaneous
  Country: GB (occurrence: GB)
  Receive Date: 20160502
  Receipt Date: 20160502
  Transmission Date: 20160815
  Serious: Yes (Other)
  Sender: FDA-Public Use
  Company Number: GB-PFIZER INC-2016235704

PATIENT
  Age: 22 Year
  Sex: Male

DRUGS (5)
  1. OXYCODONE HYDROCHLORIDE. [Suspect]
     Active Substance: OXYCODONE HYDROCHLORIDE
     Dosage: UNK
  2. ALPRAZOLAM. [Suspect]
     Active Substance: ALPRAZOLAM
     Dosage: UNK
  3. CANNABIS [Suspect]
     Active Substance: CANNABIS SATIVA SUBSP. INDICA TOP
     Dosage: UNK
  4. MORPHINE SULFATE. [Suspect]
     Active Substance: MORPHINE SULFATE
     Dosage: UNK
  5. DIAZEPAM. [Suspect]
     Active Substance: DIAZEPAM
     Dosage: TWO TO THREE BOXES OF DIAZEPAM EACH DAY WITH EACH OF THE BOXES CONTAINING TWENTY-FOUR TABLETS

REACTIONS (2)
  - Drug diversion [Unknown]
  - Drug dependence [Unknown]
